FAERS Safety Report 9470702 (Version 1)
Quarter: 2013Q3

REPORT INFORMATION
  Report Type: Spontaneous
  Country: US (occurrence: US)
  Receive Date: 20130822
  Receipt Date: 20130822
  Transmission Date: 20140515
  Serious: No
  Sender: FDA-Public Use
  Company Number: US-009507513-1308USA010140

PATIENT
  Age: 2 Year
  Sex: Female
  Weight: 22.68 kg

DRUGS (1)
  1. CLARITIN ORAL SOLUTION [Suspect]
     Indication: SEASONAL ALLERGY
     Dosage: 5 MG, BID
     Route: 048
     Dates: start: 20130810, end: 20130810

REACTIONS (2)
  - Decreased appetite [Not Recovered/Not Resolved]
  - Accidental overdose [Recovering/Resolving]
